FAERS Safety Report 7297412-8 (Version None)
Quarter: 2011Q1

REPORT INFORMATION
  Report Type: 
  Country: None (occurrence: None)
  Receive Date: 20110204
  Receipt Date: 20110121
  Transmission Date: 20110831
  Serious: Yes (Hospitalization)
  Sender: FDA-Public Use
  Company Number: 1000018580

PATIENT
  Age: 43 Year
  Sex: Male

DRUGS (4)
  1. ESCITALOPRAM [Suspect]
     Indication: MAJOR DEPRESSION
     Dosage: 15 MG (15 MG,1 IN 1 D)
     Dates: start: 20070101
  2. ESCITALOPRAM [Suspect]
     Indication: ANXIETY DISORDER
     Dosage: 15 MG (15 MG,1 IN 1 D)
     Dates: start: 20070101
  3. ESCITALOPRAM [Suspect]
     Indication: ANXIETY DISORDER
  4. ESCITALOPRAM [Suspect]
     Indication: MAJOR DEPRESSION

REACTIONS (5)
  - SLEEP DISORDER [None]
  - ADJUSTMENT DISORDER [None]
  - OBSESSIVE-COMPULSIVE DISORDER [None]
  - ANXIETY [None]
  - PHOBIA [None]
